FAERS Safety Report 11644413 (Version 1)
Quarter: 2015Q4

REPORT INFORMATION
  Report Type: Spontaneous
  Country: US (occurrence: None)
  Receive Date: 20151019
  Receipt Date: 20151019
  Transmission Date: 20160304
  Serious: No
  Sender: FDA-Public Use
  Company Number: None

PATIENT
  Age: 27 Year
  Sex: Male
  Weight: 95.26 kg

DRUGS (5)
  1. LORATADINE. [Concomitant]
     Active Substance: LORATADINE
  2. BRINTELLIX [Suspect]
     Active Substance: VORTIOXETINE HYDROBROMIDE
     Indication: ANXIETY
     Dosage: 1 PILL
     Route: 048
     Dates: start: 20150918, end: 20151014
  3. BRINTELLIX [Suspect]
     Active Substance: VORTIOXETINE HYDROBROMIDE
     Indication: DEPRESSION
     Dosage: 1 PILL
     Route: 048
     Dates: start: 20150918, end: 20151014
  4. ALBUTEROL. [Concomitant]
     Active Substance: ALBUTEROL
  5. OCCASIONAL MULTIVITAMIN [Concomitant]

REACTIONS (6)
  - Weight decreased [None]
  - Dissociation [None]
  - Coordination abnormal [None]
  - Asthenia [None]
  - Pain [None]
  - Hand fracture [None]

NARRATIVE: CASE EVENT DATE: 20151012
